FAERS Safety Report 8906473 (Version 1)
Quarter: 2012Q4

REPORT INFORMATION
  Report Type: Spontaneous
  Country: US (occurrence: None)
  Receive Date: 20121113
  Receipt Date: 20121113
  Transmission Date: 20130627
  Serious: Yes (Hospitalization, Other)
  Sender: FDA-Public Use
  Company Number: None

PATIENT
  Age: 18 Year
  Sex: Female
  Weight: 47.63 kg

DRUGS (1)
  1. MIRENA [Suspect]

REACTIONS (3)
  - Headache [None]
  - Chest pain [None]
  - Asthenia [None]
